FAERS Safety Report 6857122-5 (Version None)
Quarter: 2010Q3

REPORT INFORMATION
  Report Type: 
  Country: None (occurrence: None)
  Receive Date: 20100719
  Receipt Date: 20100715
  Transmission Date: 20110219
  Serious: Yes (Hospitalization)
  Sender: FDA-Public Use
  Company Number: B0665508A

PATIENT
  Sex: Female

DRUGS (9)
  1. ZOVIRAX [Suspect]
     Indication: PRODUCT USED FOR UNKNOWN INDICATION
     Dosage: 250MG THREE TIMES PER DAY
     Route: 042
     Dates: start: 20100527, end: 20100531
  2. TAZOCILLINE [Suspect]
     Indication: PRODUCT USED FOR UNKNOWN INDICATION
     Dosage: 4G THREE TIMES PER DAY
     Route: 042
     Dates: start: 20100527, end: 20100531
  3. TRIFLUCAN [Suspect]
     Indication: PRODUCT USED FOR UNKNOWN INDICATION
     Dosage: 200MG PER DAY
     Route: 042
     Dates: start: 20100527, end: 20100531
  4. NEXIUM [Concomitant]
     Indication: PRODUCT USED FOR UNKNOWN INDICATION
     Dosage: 40MG PER DAY
     Route: 042
     Dates: start: 20100531
  5. PRIMPERAN TAB [Concomitant]
     Indication: PRODUCT USED FOR UNKNOWN INDICATION
     Route: 042
  6. OXYCODONE HCL [Concomitant]
     Indication: PRODUCT USED FOR UNKNOWN INDICATION
     Dosage: 20MG PER DAY
     Route: 042
     Dates: start: 20100530
  7. POLARAMINE [Concomitant]
     Indication: PRODUCT USED FOR UNKNOWN INDICATION
     Route: 065
  8. CYTARABINE [Concomitant]
     Indication: LYMPHOMA
     Route: 065
     Dates: start: 20100518, end: 20100522
  9. ETOPOSIDE [Concomitant]
     Indication: LYMPHOMA
     Route: 065
     Dates: start: 20100518, end: 20100522

REACTIONS (2)
  - PRURITUS [None]
  - RASH [None]
